FAERS Safety Report 5939864-9 (Version None)
Quarter: 2008Q4

REPORT INFORMATION
  Report Type: 
  Country: None (occurrence: None)
  Receive Date: 20081104
  Receipt Date: 20081024
  Transmission Date: 20090506
  Serious: Yes (Life-Threatening, Other)
  Sender: FDA-Public Use
  Company Number: DE-JNJFOC-20081001604

PATIENT
  Sex: Male
  Weight: 35 kg

DRUGS (3)
  1. TOPAMAX [Suspect]
     Indication: LENNOX-GASTAUT SYNDROME
     Route: 048
  2. TEGRETOL [Concomitant]
  3. KEPPRA [Concomitant]

REACTIONS (1)
  - LOSS OF CONSCIOUSNESS [None]
